FAERS Safety Report 9447758 (Version 1)
Quarter: 2013Q3

REPORT INFORMATION
  Report Type: Spontaneous
  Country: US (occurrence: US)
  Receive Date: 20130808
  Receipt Date: 20130808
  Transmission Date: 20140515
  Serious: Yes (Death)
  Sender: FDA-Public Use
  Company Number: US-IAC JAPAN XML-USA-2013-0102947

PATIENT
  Sex: Female
  Weight: 183 kg

DRUGS (2)
  1. BUTRANS [Suspect]
     Indication: CANCER PAIN
     Dosage: 20 MCG/HR, WEEKLY
     Route: 062
     Dates: start: 201302
  2. BUTRANS [Suspect]
     Dosage: 10 MCG/HR, WEEKLY
     Route: 062

REACTIONS (1)
  - Lung cancer metastatic [Fatal]
